FAERS Safety Report 4775513-3 (Version None)
Quarter: 2005Q3

REPORT INFORMATION
  Report Type: 
  Country: None (occurrence: None)
  Receive Date: 20050922
  Receipt Date: 20050912
  Transmission Date: 20060218
  Serious: Yes (Death)
  Sender: FDA-Public Use
  Company Number: US-JNJFOC-20040103284

PATIENT
  Sex: Female

DRUGS (15)
  1. INFLIXIMAB [Suspect]
     Indication: RHEUMATOID ARTHRITIS
     Route: 042
     Dates: start: 20010228, end: 20011101
  2. AZULFADINE [Concomitant]
  3. CALCIUM GLUCONATE [Concomitant]
  4. COZAAR [Concomitant]
  5. DARVOCET [Concomitant]
  6. DARVOCET [Concomitant]
     Dosage: AS NEEDED
  7. FOSAMAX [Concomitant]
  8. DURAGESIC-100 [Concomitant]
  9. DURAGESIC-100 [Concomitant]
  10. DURAGESIC-100 [Concomitant]
  11. DURAGESIC-100 [Concomitant]
  12. ALBUTEROL [Concomitant]
     Route: 055
  13. FLOVENT [Concomitant]
     Route: 055
  14. LASIX [Concomitant]
  15. MEDROL [Concomitant]

REACTIONS (1)
  - CORONARY ARTERY ATHEROSCLEROSIS [None]
